FAERS Safety Report 11146488 (Version 1)
Quarter: 2015Q2

REPORT INFORMATION
  Report Type: Spontaneous
  Country: US (occurrence: US)
  Receive Date: 20150528
  Receipt Date: 20150528
  Transmission Date: 20150821
  Serious: No
  Sender: FDA-Public Use
  Company Number: US-BAUSCH-BL-2014-005932

PATIENT
  Sex: Female

DRUGS (2)
  1. RETISERT [Suspect]
     Active Substance: FLUOCINOLONE ACETONIDE
     Indication: AUTOIMMUNE RETINOPATHY
     Dates: start: 201309
  2. RETISERT [Suspect]
     Active Substance: FLUOCINOLONE ACETONIDE
     Indication: BLINDNESS
     Dates: start: 201311

REACTIONS (2)
  - Intraocular pressure increased [Not Recovered/Not Resolved]
  - Drug ineffective [Not Recovered/Not Resolved]

NARRATIVE: CASE EVENT DATE: 2013
